FAERS Safety Report 16625606 (Version 1)
Quarter: 2019Q3

REPORT INFORMATION
  Report Type: Report from Study
  Country: US (occurrence: US)
  Receive Date: 20190724
  Receipt Date: 20190724
  Transmission Date: 20191004
  Serious: Yes (Hospitalization)
  Sender: FDA-Public Use
  Company Number: US-BAYER-2019-134494

PATIENT
  Age: 69 Year
  Sex: Male

DRUGS (6)
  1. PROCHLORPERAZINE. [Concomitant]
     Active Substance: PROCHLORPERAZINE
  2. LORAZEPAM. [Concomitant]
     Active Substance: LORAZEPAM
  3. ROSUVASTATIN. [Concomitant]
     Active Substance: ROSUVASTATIN
  4. STIVARGA [Suspect]
     Active Substance: REGORAFENIB
     Indication: COLON CANCER
     Dosage: 80 MG DAILY FOR 21 DAYS THEN OFF 7 DAYS
     Route: 048
     Dates: start: 20190226, end: 20190627
  5. IMODIUM MULTI ACTION [Concomitant]
     Dosage: 2 - 125 MG
  6. DIPHEN [DIPHENHYDRAMINE HYDROCHLORIDE] [Concomitant]

REACTIONS (4)
  - Sepsis [Not Recovered/Not Resolved]
  - Drug ineffective [Not Recovered/Not Resolved]
  - Off label use [None]
  - Pneumonia [Not Recovered/Not Resolved]

NARRATIVE: CASE EVENT DATE: 20190226
